FAERS Safety Report 4708536-0 (Version None)
Quarter: 2005Q3

REPORT INFORMATION
  Report Type: 
  Country: None (occurrence: None)
  Receive Date: 20050707
  Receipt Date: 20050615
  Transmission Date: 20060218
  Serious: Yes (Hospitalization)
  Sender: FDA-Public Use
  Company Number: JP-GLAXOSMITHKLINE-B0384753A

PATIENT
  Sex: Male

DRUGS (7)
  1. PAXIL [Suspect]
     Indication: DEPRESSION
     Dosage: 10MG TWICE PER DAY
     Route: 048
     Dates: start: 20050120, end: 20050518
  2. TOLEDOMIN [Suspect]
     Indication: DEPRESSION
     Dosage: 25MG TWICE PER DAY
     Route: 048
     Dates: start: 20050414, end: 20050518
  3. MEILAX [Concomitant]
     Indication: HYPERVENTILATION
     Route: 048
     Dates: start: 20050526
  4. SOLANAX [Concomitant]
     Route: 048
  5. ALPRAZOLAM [Concomitant]
     Indication: PAIN
     Route: 048
     Dates: start: 20050106, end: 20050518
  6. BROTIZOLAM [Concomitant]
     Indication: INSOMNIA
     Dates: start: 20050523
  7. MAPROTILINE HYDROCHLORIDE [Concomitant]
     Indication: HYPERVENTILATION
     Dates: start: 20050526

REACTIONS (3)
  - BLOOD CREATINE PHOSPHOKINASE INCREASED [None]
  - DRUG ABUSER [None]
  - NEUROLEPTIC MALIGNANT SYNDROME [None]
